FAERS Safety Report 9048951 (Version 1)
Quarter: 2013Q1

REPORT INFORMATION
  Report Type: Spontaneous
  Country: US (occurrence: None)
  Receive Date: 20130129
  Receipt Date: 20130129
  Transmission Date: 20140127
  Serious: Yes (Hospitalization)
  Sender: FDA-Public Use
  Company Number: None

PATIENT
  Age: 29 Year
  Sex: Female
  Weight: 75 kg

DRUGS (1)
  1. OXYTOCIN [Suspect]
     Indication: CAESAREAN SECTION
     Dosage: 30 UNITS  X1  IV BOLUS?01/10/2013  -  01/11/2013
     Route: 040
     Dates: start: 20130110, end: 20130111

REACTIONS (2)
  - Drug ineffective [None]
  - Maternal exposure during delivery [None]
